FAERS Safety Report 8807909 (Version 1)
Quarter: 2012Q4

REPORT INFORMATION
  Report Type: 
  Country: BR (occurrence: BR)
  Receive Date: 20120925
  Receipt Date: 20120925
  Transmission Date: 20130627
  Serious: Yes (Other)
  Sender: FDA-Public Use
  Company Number: PHHY2012BR080530

PATIENT
  Age: 68 Year
  Sex: Male
  Weight: 74 kg

DRUGS (4)
  1. FORASEQ [Suspect]
     Dosage: 1 DF (12/400 mcg) BID
  2. BUDESONIDE [Suspect]
     Dosage: 64 ug, BID
  3. BUDESONIDE [Suspect]
     Dosage: 1600 ug, per day
  4. MOMETASONE [Concomitant]
     Dosage: UNK UKN, UNK

REACTIONS (9)
  - Obstructive airways disorder [Recovering/Resolving]
  - Emphysema [Recovering/Resolving]
  - Rhonchi [Recovering/Resolving]
  - Cough [Recovering/Resolving]
  - Sinus disorder [Recovering/Resolving]
  - Dyspnoea [Recovering/Resolving]
  - Middle insomnia [Recovering/Resolving]
  - Dyspepsia [Recovering/Resolving]
  - Activities of daily living impaired [None]
